FAERS Safety Report 18510997 (Version 1)
Quarter: 2020Q4

REPORT INFORMATION
  Report Type: Spontaneous
  Country: US (occurrence: US)
  Receive Date: 20201117
  Receipt Date: 20201117
  Transmission Date: 20210114
  Serious: Yes (Other)
  Sender: FDA-Public Use
  Company Number: US-SHILPA MEDICARE LIMITED-SML-US-2020-00624

PATIENT
  Age: 77 Year
  Sex: Female

DRUGS (3)
  1. IMATINIB, UNKNOWN [Suspect]
     Active Substance: IMATINIB
     Route: 048
  2. IMATINIB, UNKNOWN [Suspect]
     Active Substance: IMATINIB
     Indication: GASTROINTESTINAL STROMAL TUMOUR
     Route: 048
  3. IMATINIB, UNKNOWN [Suspect]
     Active Substance: IMATINIB
     Route: 048

REACTIONS (4)
  - Rash macular [Recovering/Resolving]
  - Rash maculo-papular [Recovering/Resolving]
  - Skin hyperpigmentation [Recovering/Resolving]
  - Skin toxicity [Recovering/Resolving]
